FAERS Safety Report 11848731 (Version 1)
Quarter: 2015Q4

REPORT INFORMATION
  Report Type: Spontaneous
  Country: SE (occurrence: SE)
  Receive Date: 20151218
  Receipt Date: 20151218
  Transmission Date: 20160305
  Serious: Yes (Hospitalization, Other)
  Sender: FDA-Public Use
  Company Number: SE-AMGEN-SWESP2015132919

PATIENT
  Age: 80 Year
  Sex: Female

DRUGS (18)
  1. FURIX [Concomitant]
     Active Substance: FUROSEMIDE
  2. TRAVATAN [Concomitant]
     Active Substance: TRAVOPROST
  3. CALCICHEW [Concomitant]
     Active Substance: CALCIUM CARBONATE
  4. WARAN [Concomitant]
     Active Substance: WARFARIN SODIUM
  5. PREDNISOLONE. [Concomitant]
     Active Substance: PREDNISOLONE
  6. METOPROLOL [Concomitant]
     Active Substance: METOPROLOL
  7. OVESTERIN [Concomitant]
     Active Substance: ESTRIOL
  8. DIVISUN [Concomitant]
  9. AMLODIPINE [Concomitant]
     Active Substance: AMLODIPINE BESYLATE
  10. OXYNORM [Concomitant]
     Active Substance: OXYCODONE HYDROCHLORIDE
  11. PROLIA [Suspect]
     Active Substance: DENOSUMAB
     Indication: OSTEOPOROSIS
     Dosage: UNK
     Route: 058
     Dates: start: 20141127, end: 20151201
  12. ATORBIR [Concomitant]
     Active Substance: ATORVASTATIN
  13. OXYCONTIN [Concomitant]
     Active Substance: OXYCODONE HYDROCHLORIDE
  14. LAXIRIVA [Concomitant]
     Route: 048
  15. KALEORID [Concomitant]
     Active Substance: POTASSIUM CHLORIDE
  16. ALVEDON [Concomitant]
     Active Substance: ACETAMINOPHEN
  17. ATACAND [Concomitant]
     Active Substance: CANDESARTAN CILEXETIL
  18. OMEPRAZOLE. [Concomitant]
     Active Substance: OMEPRAZOLE

REACTIONS (1)
  - Atypical femur fracture [Not Recovered/Not Resolved]

NARRATIVE: CASE EVENT DATE: 20150924
